FAERS Safety Report 21542145 (Version 3)
Quarter: 2022Q4

REPORT INFORMATION
  Report Type: Spontaneous
  Country: US (occurrence: US)
  Receive Date: 20221102
  Receipt Date: 20221130
  Transmission Date: 20230113
  Serious: No
  Sender: FDA-Public Use
  Company Number: US-PFIZER INC-202201269577

PATIENT
  Age: 57 Year
  Sex: Male
  Weight: 99.77 kg

DRUGS (1)
  1. PAXLOVID [Suspect]
     Active Substance: NIRMATRELVIR\RITONAVIR
     Indication: COVID-19 treatment
     Dosage: NIRMATRELVIR 300MG AND RITONAVIR 100MG
     Dates: start: 20221012, end: 20221017

REACTIONS (3)
  - Urticaria [Not Recovered/Not Resolved]
  - Rash pruritic [Recovering/Resolving]
  - Middle insomnia [Unknown]

NARRATIVE: CASE EVENT DATE: 20221001
